FAERS Safety Report 7222557-8 (Version None)
Quarter: 2011Q1

REPORT INFORMATION
  Report Type: 
  Country: None (occurrence: None)
  Receive Date: 20110112
  Receipt Date: 20110110
  Transmission Date: 20110831
  Serious: Yes (Other)
  Sender: FDA-Public Use
  Company Number: US-PFIZER INC-2011006337

PATIENT
  Sex: Male
  Weight: 96.145 kg

DRUGS (1)
  1. VFEND [Suspect]
     Indication: NEUTROPENIA
     Dosage: 200 MG, 2X/DAY
     Route: 048
     Dates: start: 20110103, end: 20110105

REACTIONS (4)
  - LEUKAEMIA [None]
  - SKIN EXFOLIATION [None]
  - DIARRHOEA [None]
  - SKIN DISCOLOURATION [None]
